FAERS Safety Report 23058122 (Version 1)
Quarter: 2023Q4

REPORT INFORMATION
  Report Type: Spontaneous
  Country: US (occurrence: US)
  Receive Date: 20231012
  Receipt Date: 20231012
  Transmission Date: 20240110
  Serious: Yes (Hospitalization, Other)
  Sender: FDA-Public Use
  Company Number: US-ALEMBIC PHARMACUETICALS LIMITED-2023SCAL000824

PATIENT

DRUGS (3)
  1. LITHIUM CARBONATE [Suspect]
     Active Substance: LITHIUM CARBONATE
     Indication: Bipolar I disorder
     Dosage: 900 MILLIGRAM, QD, AT NIGHT
     Route: 065
  2. LAMOTRIGINE [Concomitant]
     Active Substance: LAMOTRIGINE
     Indication: Bipolar I disorder
     Dosage: 125 MILLIGRAM, BID
     Route: 065
  3. FLUPHENAZINE [Concomitant]
     Active Substance: FLUPHENAZINE
     Indication: Bipolar I disorder
     Dosage: 5 MILLIGRAM, BID
     Route: 065

REACTIONS (23)
  - Brain injury [Unknown]
  - Fall [Unknown]
  - Hypotonia [Unknown]
  - Acidosis [Unknown]
  - Hypoxia [Unknown]
  - Acute kidney injury [Unknown]
  - Rhabdomyolysis [Unknown]
  - Blood bicarbonate decreased [Unknown]
  - Blood creatinine increased [Unknown]
  - Blood pressure decreased [Unknown]
  - Agitation [Unknown]
  - Glomerular filtration rate decreased [Unknown]
  - Antipsychotic drug level increased [Recovered/Resolved]
  - Dysarthria [Recovering/Resolving]
  - Hyporesponsive to stimuli [Recovering/Resolving]
  - Stupor [Recovering/Resolving]
  - Pyrexia [Unknown]
  - Leukocytosis [Unknown]
  - Toxic encephalopathy [Unknown]
  - Tremor [Unknown]
  - Toxicity to various agents [Unknown]
  - Ataxia [Recovering/Resolving]
  - Depressed level of consciousness [Recovering/Resolving]
